FAERS Safety Report 13426911 (Version 1)
Quarter: 2017Q2

REPORT INFORMATION
  Report Type: Spontaneous
  Country: US (occurrence: US)
  Receive Date: 20170411
  Receipt Date: 20170411
  Transmission Date: 20170830
  Serious: No
  Sender: FDA-Public Use
  Company Number: None

PATIENT
  Age: 75 Year
  Sex: Male
  Weight: 126 kg

DRUGS (2)
  1. PROAIR HFA [Suspect]
     Active Substance: ALBUTEROL SULFATE
     Indication: ASTHMA
     Dosage: 1 PUFF AS NEEDED RESPIRATORY (INHALATION)
     Route: 055
     Dates: start: 20140101, end: 20161231
  2. ASTHEMA INHALE [Concomitant]

REACTIONS (2)
  - Accidental overdose [None]
  - Device malfunction [None]
